FAERS Safety Report 18050815 (Version 2)
Quarter: 2020Q3

REPORT INFORMATION
  Report Type: Report from Study
  Country: IT (occurrence: IT)
  Receive Date: 20200721
  Receipt Date: 20200908
  Transmission Date: 20201103
  Serious: Yes (Hospitalization)
  Sender: FDA-Public Use
  Company Number: IT-TAKEDA-2020TUS031290

PATIENT
  Age: 18 Year
  Sex: Female

DRUGS (3)
  1. LITHIUM SULFATE [Suspect]
     Active Substance: LITHIUM SULFATE
     Indication: BIPOLAR DISORDER
     Dosage: 6225 MILLIGRAM, QD
     Route: 048
     Dates: start: 20200609, end: 20200609
  2. VORTIOXETINE. [Suspect]
     Active Substance: VORTIOXETINE
     Indication: BIPOLAR DISORDER
     Dosage: 280 MILLIGRAM, QD
     Route: 048
     Dates: start: 20200609, end: 20200609
  3. QUETIAPINE. [Suspect]
     Active Substance: QUETIAPINE
     Indication: BIPOLAR DISORDER
     Dosage: 16800 MILLIGRAM
     Route: 048
     Dates: start: 20200609, end: 20200609

REACTIONS (5)
  - Vomiting [Recovering/Resolving]
  - Antipsychotic drug level increased [Recovering/Resolving]
  - Drug abuse [Recovering/Resolving]
  - Product use in unapproved indication [Unknown]
  - Overdose [Unknown]

NARRATIVE: CASE EVENT DATE: 20200609
